FAERS Safety Report 9405431 (Version 1)
Quarter: 2013Q3

REPORT INFORMATION
  Report Type: Spontaneous
  Country: FR (occurrence: FR)
  Receive Date: 20130717
  Receipt Date: 20130717
  Transmission Date: 20140515
  Serious: Yes (Hospitalization, Other)
  Sender: FDA-Public Use
  Company Number: FR-009507513-1307FRA004603

PATIENT
  Age: 28 Year
  Sex: Female

DRUGS (2)
  1. GONADOTROPHINE CHORIONIQUE ENDO 5000 UI/1ML [Suspect]
     Dosage: 5000 IU, ONCE
     Route: 042
     Dates: start: 20070531, end: 20070531
  2. CLOMID [Suspect]
     Indication: INFERTILITY
     Dosage: 50 MG, QD
     Route: 048
     Dates: start: 20070521, end: 20070526

REACTIONS (3)
  - VIth nerve paralysis [Recovering/Resolving]
  - Eye pain [Recovering/Resolving]
  - Diplopia [Recovering/Resolving]
